FAERS Safety Report 23121997 (Version 2)
Quarter: 2023Q4

REPORT INFORMATION
  Report Type: Spontaneous
  Country: US (occurrence: US)
  Receive Date: 20231030
  Receipt Date: 20231124
  Transmission Date: 20240110
  Serious: Yes (Other)
  Sender: FDA-Public Use
  Company Number: US-BRISTOL-MYERS SQUIBB COMPANY-2023-149887

PATIENT
  Age: 68 Year
  Sex: Female
  Weight: 54.88 kg

DRUGS (1)
  1. REVLIMID [Suspect]
     Active Substance: LENALIDOMIDE
     Indication: Plasma cell myeloma
     Dosage: 3W, 1W OFF
     Route: 048

REACTIONS (7)
  - Pain [Unknown]
  - Inflammation [Unknown]
  - Arthropathy [Unknown]
  - Postural orthostatic tachycardia syndrome [Unknown]
  - COVID-19 [Recovering/Resolving]
  - Thrombosis [Unknown]
  - Pelvic fracture [Unknown]

NARRATIVE: CASE EVENT DATE: 20231101
